APPROVED DRUG PRODUCT: DISOPYRAMIDE PHOSPHATE
Active Ingredient: DISOPYRAMIDE PHOSPHATE
Strength: EQ 150MG BASE
Dosage Form/Route: CAPSULE;ORAL
Application: A070187 | Product #001
Applicant: IVAX PHARMACEUTICALS INC SUB TEVA PHARMACEUTICALS USA
Approved: Nov 18, 1985 | RLD: No | RS: No | Type: DISCN